FAERS Safety Report 13565109 (Version 2)
Quarter: 2017Q2

REPORT INFORMATION
  Report Type: Spontaneous
  Country: JP (occurrence: JP)
  Receive Date: 20170519
  Receipt Date: 20170530
  Transmission Date: 20170830
  Serious: Yes (Hospitalization, Other)
  Sender: FDA-Public Use
  Company Number: JP-GILEAD-2017-0263001

PATIENT
  Age: 61 Year
  Sex: Male
  Weight: 48.8 kg

DRUGS (9)
  1. SOVALDI [Suspect]
     Active Substance: SOFOSBUVIR
     Indication: CHRONIC HEPATITIS C
     Dosage: UNK
     Route: 048
     Dates: start: 20151031
  2. AMLODIPINE [Concomitant]
     Active Substance: AMLODIPINE BESYLATE
  3. NEXIUM [Concomitant]
     Active Substance: ESOMEPRAZOLE MAGNESIUM
  4. NOVORAPID [Concomitant]
     Active Substance: INSULIN ASPART
  5. URSO [Concomitant]
     Active Substance: URSODIOL
  6. TANATRIL [Concomitant]
     Active Substance: IMIDAPRIL
  7. REBETOL [Suspect]
     Active Substance: RIBAVIRIN
     Indication: CHRONIC HEPATITIS C
     Dosage: 600 MG, UNK
     Route: 048
     Dates: start: 20151031
  8. URIADEC [Concomitant]
     Active Substance: TOPIROXOSTAT
  9. SILECE [Concomitant]
     Active Substance: FLUNITRAZEPAM

REACTIONS (3)
  - Drug ineffective [Unknown]
  - Hepatocellular carcinoma [Not Recovered/Not Resolved]
  - Ascites [Not Recovered/Not Resolved]

NARRATIVE: CASE EVENT DATE: 20170127
